FAERS Safety Report 17555920 (Version 1)
Quarter: 2020Q1

REPORT INFORMATION
  Report Type: Spontaneous
  Country: SI (occurrence: SI)
  Receive Date: 20200318
  Receipt Date: 20200318
  Transmission Date: 20200409
  Serious: Yes (Other)
  Sender: FDA-Public Use
  Company Number: SI-ELI_LILLY_AND_COMPANY-SI202003007043

PATIENT
  Age: 27 Year
  Sex: Male

DRUGS (4)
  1. PORTALAK [LACTULOSE] [Concomitant]
     Indication: PRODUCT USED FOR UNKNOWN INDICATION
  2. ZYPADHERA [Suspect]
     Active Substance: OLANZAPINE PAMOATE
     Indication: SCHIZOPHRENIA
     Dosage: 300 MG, EVERY TWO WEEKS
     Route: 030
     Dates: start: 2014, end: 201502
  3. ZYPADHERA [Suspect]
     Active Substance: OLANZAPINE PAMOATE
     Indication: SCHIZOPHRENIA
     Dosage: 300 MG, EVERY TWO WEEKS
     Route: 030
     Dates: start: 2014, end: 201502
  4. ZYPADHERA [Suspect]
     Active Substance: OLANZAPINE PAMOATE
     Indication: SCHIZOPHRENIA
     Dosage: 300 MG, EVERY TWO WEEKS
     Route: 030
     Dates: start: 2014, end: 201502

REACTIONS (17)
  - Antisocial behaviour [Not Recovered/Not Resolved]
  - Tremor [Unknown]
  - Varicose vein [Unknown]
  - Palpitations [Recovered/Resolved]
  - Skin disorder [Recovered/Resolved]
  - Screaming [Not Recovered/Not Resolved]
  - Blood pressure systolic increased [Recovered/Resolved]
  - Liver disorder [Recovering/Resolving]
  - Memory impairment [Not Recovered/Not Resolved]
  - Dyskinesia [Not Recovered/Not Resolved]
  - Ammonia increased [Unknown]
  - Disturbance in attention [Not Recovered/Not Resolved]
  - Renal disorder [Unknown]
  - Cardiac disorder [Unknown]
  - Mental impairment [Not Recovered/Not Resolved]
  - Decreased eye contact [Unknown]
  - Dementia [Not Recovered/Not Resolved]

NARRATIVE: CASE EVENT DATE: 2014
